FAERS Safety Report 4668444-0 (Version None)
Quarter: 2005Q2

REPORT INFORMATION
  Report Type: 
  Country: None (occurrence: None)
  Receive Date: 20050523
  Receipt Date: 20050304
  Transmission Date: 20051028
  Serious: Yes (Other)
  Sender: FDA-Public Use
  Company Number: PHNU2005DE01215

PATIENT
  Age: 45 Year
  Sex: Female
  Weight: 79 kg

DRUGS (5)
  1. ZOMETA [Suspect]
     Indication: METASTASES TO BONE
     Dosage: 4 MG, QMO
     Route: 042
     Dates: start: 20021111
  2. AREDIA [Suspect]
     Indication: METASTASES TO BONE
     Dosage: 90 MG, QMO
     Route: 042
     Dates: start: 20010716, end: 20021014
  3. EPIRUBICIN [Concomitant]
     Indication: BREAST CANCER
     Route: 065
     Dates: start: 20010501, end: 20010901
  4. CYCLOPHOSPHAMIDE [Concomitant]
     Indication: BREAST CANCER
     Route: 065
     Dates: start: 20010501, end: 20010901
  5. RADIOTHERAPY [Concomitant]
     Indication: METASTASES TO BONE
     Route: 065
     Dates: start: 20040420, end: 20040511

REACTIONS (5)
  - JAW DISORDER [None]
  - OSTEONECROSIS [None]
  - PROSTHESIS IMPLANTATION [None]
  - PYOGENIC GRANULOMA [None]
  - TOOTH EXTRACTION [None]
